FAERS Safety Report 4716012-4 (Version None)
Quarter: 2005Q3

REPORT INFORMATION
  Report Type: 
  Country: None (occurrence: None)
  Receive Date: 20050718
  Receipt Date: 20050712
  Transmission Date: 20060218
  Serious: Yes (Hospitalization)
  Sender: FDA-Public Use
  Company Number: FR-GLAXOSMITHKLINE-B0387667A

PATIENT
  Age: 57 Year
  Sex: Male

DRUGS (2)
  1. CLAMOXYL [Suspect]
     Indication: BRONCHITIS
     Route: 048
     Dates: start: 20050511, end: 20050516
  2. AMOXICILLIN [Suspect]
     Route: 065
     Dates: start: 19960101, end: 19960101

REACTIONS (7)
  - DELIRIUM [None]
  - EXCITABILITY [None]
  - HYPERSENSITIVITY [None]
  - MUCOSAL EROSION [None]
  - PYREXIA [None]
  - STEVENS-JOHNSON SYNDROME [None]
  - STOMATITIS [None]
